FAERS Safety Report 26061570 (Version 3)
Quarter: 2025Q4

REPORT INFORMATION
  Report Type: Spontaneous
  Country: AU (occurrence: AU)
  Receive Date: 20251118
  Receipt Date: 20251127
  Transmission Date: 20260119
  Serious: Yes (Death, Other)
  Sender: ALEXION PHARMACEUTICALS
  Company Number: AU-ASTRAZENECA-202511GLO010124AU

PATIENT

DRUGS (3)
  1. DAPAGLIFLOZIN [Suspect]
     Active Substance: DAPAGLIFLOZIN
  2. SACUBITRIL\VALSARTAN [Suspect]
     Active Substance: SACUBITRIL\VALSARTAN
  3. IVABRADINE [Suspect]
     Active Substance: IVABRADINE

REACTIONS (5)
  - Foetal exposure during pregnancy [Fatal]
  - Hydrops foetalis [Fatal]
  - Oligohydramnios [Fatal]
  - Kidney enlargement [Fatal]
  - Cardiomegaly [Fatal]
